FAERS Safety Report 5071149-8 (Version None)
Quarter: 2006Q3

REPORT INFORMATION
  Report Type: 
  Country: None (occurrence: None)
  Receive Date: 20060804
  Receipt Date: 20060303
  Transmission Date: 20061208
  Serious: No
  Sender: FDA-Public Use
  Company Number: US-GLAXOSMITHKLINE-A0596080A

PATIENT
  Age: 54 Year
  Sex: Male

DRUGS (1)
  1. EQUATE NICOTINE GUM 4MG [Suspect]
     Dates: start: 20060301, end: 20060302

REACTIONS (2)
  - RASH ERYTHEMATOUS [None]
  - RASH PRURITIC [None]
